FAERS Safety Report 5345320-1 (Version None)
Quarter: 2007Q2

REPORT INFORMATION
  Report Type: 
  Country: None (occurrence: None)
  Receive Date: 20070601
  Receipt Date: 20070524
  Transmission Date: 20071010
  Serious: Yes (Life-Threatening, Hospitalization, Other)
  Sender: FDA-Public Use
  Company Number: 2007SP009148

PATIENT
  Age: 51 Year
  Sex: Female
  Weight: 83.1 kg

DRUGS (11)
  1. PEG-INTRON [Suspect]
     Indication: HEPATITIS C
     Dosage: 150 MCG;QW;SC
     Route: 058
     Dates: start: 20070108, end: 20070408
  2. RIBAVIRIN [Suspect]
     Indication: HEPATITIS C
     Dosage: PO
     Route: 048
     Dates: start: 20070108, end: 20070408
  3. PROCRIT [Suspect]
     Indication: ANAEMIA
     Dosage: 2000 IU;QW;SC
     Route: 058
  4. PREDNISONE TAB [Concomitant]
  5. FILGRASTIM [Concomitant]
  6. LACTULOSE [Concomitant]
  7. REGLAN [Concomitant]
  8. PROPRANOLOL [Concomitant]
  9. SERTRALINE [Concomitant]
  10. SPIRONOLACTONE [Concomitant]
  11. LASIX [Concomitant]

REACTIONS (5)
  - BLOOD GLUCOSE INCREASED [None]
  - HAEMOGLOBIN DECREASED [None]
  - HYPOAESTHESIA [None]
  - PAIN [None]
  - PULMONARY EMBOLISM [None]
